FAERS Safety Report 20184284 (Version 1)
Quarter: 2021Q4

REPORT INFORMATION
  Report Type: Spontaneous
  Country: US (occurrence: US)
  Receive Date: 20211214
  Receipt Date: 20211214
  Transmission Date: 20220303
  Serious: No
  Sender: FDA-Public Use
  Company Number: US-SK LIFE SCIENCE, INC-SKPVG-2021-000949

PATIENT

DRUGS (8)
  1. XCOPRI [Suspect]
     Active Substance: CENOBAMATE
     Indication: Atonic seizures
     Dosage: 12.5 MILLIGRAM
     Route: 048
     Dates: start: 20210801
  2. XCOPRI [Suspect]
     Active Substance: CENOBAMATE
     Dosage: 25 MILLIGRAM
     Route: 048
  3. XCOPRI [Suspect]
     Active Substance: CENOBAMATE
     Dosage: 50 MILLIGRAM, QD (50MG BY 100 MG BLISTER PACK)
     Route: 048
  4. DEPAKOTE [Suspect]
     Active Substance: DIVALPROEX SODIUM
     Indication: Seizure
     Dosage: 250 MILLIGRAM (REDUCED ONE 250MG) LARGE DOSE
     Route: 065
  5. DEPAKOTE [Suspect]
     Active Substance: DIVALPROEX SODIUM
     Dosage: REDUCED ANOTHER 250MG
     Route: 065
  6. LUVOX [Suspect]
     Active Substance: FLUVOXAMINE MALEATE
     Indication: Seizure
     Dosage: 2PILLS
     Route: 065
  7. LUVOX [Suspect]
     Active Substance: FLUVOXAMINE MALEATE
     Dosage: 1 PILL
     Route: 065
  8. OXTELLAR XR [Concomitant]
     Active Substance: OXCARBAZEPINE
     Indication: Generalised tonic-clonic seizure
     Dosage: UNK
     Route: 065

REACTIONS (3)
  - Aggression [Not Recovered/Not Resolved]
  - Obsessive-compulsive personality disorder [Not Recovered/Not Resolved]
  - Condition aggravated [Not Recovered/Not Resolved]
